FAERS Safety Report 6781418-9 (Version None)
Quarter: 2010Q2

REPORT INFORMATION
  Report Type: 
  Country: None (occurrence: None)
  Receive Date: 20100621
  Receipt Date: 20100325
  Transmission Date: 20101027
  Serious: Yes (Other)
  Sender: FDA-Public Use
  Company Number: US-AMGEN-QUU401966

PATIENT
  Sex: Male

DRUGS (4)
  1. ARANESP [Suspect]
     Indication: ANAEMIA OF MALIGNANT DISEASE
     Dates: start: 20091224
  2. CARBOPLATIN [Concomitant]
  3. TAXOL [Concomitant]
  4. LEUKINE [Concomitant]
     Route: 058

REACTIONS (1)
  - HAEMOGLOBIN DECREASED [None]
